FAERS Safety Report 18977955 (Version 3)
Quarter: 2021Q2

REPORT INFORMATION
  Report Type: Spontaneous
  Country: US (occurrence: US)
  Receive Date: 20210307
  Receipt Date: 20210602
  Transmission Date: 20210717
  Serious: Yes (Death, Hospitalization, Other)
  Sender: FDA-Public Use
  Company Number: US-TEVA-2021-US-1887159

PATIENT
  Sex: Male
  Weight: 90.71 kg

DRUGS (12)
  1. VALSARTAN/HYDROCHLOROTHIAZIDE ALEMBIC PHARMACEUTICALS [Suspect]
     Active Substance: HYDROCHLOROTHIAZIDE\VALSARTAN
     Indication: HYPERTENSION
     Dosage: STRENGTH: 160?12 MG?VALSARTAN/HYDROCHLOROTHIAZIDE ALEMBIC PHARMACEUTICALS
     Route: 065
     Dates: start: 20171216, end: 20181004
  2. VALSARTAN/HYDROCHLOROTHIAZIDE MACLEODS PHARMACEUTICAL [Suspect]
     Active Substance: HYDROCHLOROTHIAZIDE\VALSARTAN
     Indication: HYPERTENSION
     Dosage: STRENGTH: 160?12 MG?VALSARTAN/HYDROCHLOROTHIAZIDE MACLEODS PHARMACEUTICAL
     Route: 065
     Dates: start: 20181019, end: 20190423
  3. METFORMIN [Concomitant]
     Active Substance: METFORMIN HYDROCHLORIDE
     Indication: DIABETES MELLITUS
     Route: 065
  4. METOPROLOL. [Concomitant]
     Active Substance: METOPROLOL
     Indication: HYPERTENSION
     Dosage: DAILY
     Route: 065
     Dates: start: 200901, end: 201905
  5. DIOVAN HCT [Suspect]
     Active Substance: HYDROCHLOROTHIAZIDE\VALSARTAN
     Indication: HYPERTENSION
     Dosage: STRENGTH: 160?12.5 MG
     Route: 065
     Dates: start: 20070328, end: 20100717
  6. VALSARTAN W/HYDROCHLOROTHIAZIDE TEVA [Suspect]
     Active Substance: HYDROCHLOROTHIAZIDE\VALSARTAN
     Indication: HYPERTENSION
     Dosage: FORM STRENGTH: 160?12 MG
     Route: 065
     Dates: start: 20131002, end: 20131009
  7. VALSARTAN/HYDROCHLOROTHIAZIDE ACETERIS [Suspect]
     Active Substance: HYDROCHLOROTHIAZIDE\VALSARTAN
     Indication: HYPERTENSION
     Dosage: STRENGTH: 160?12 MG
     Route: 065
     Dates: start: 20170315, end: 20170911
  8. SYNTHROID [Concomitant]
     Active Substance: LEVOTHYROXINE SODIUM
     Indication: HYPOTHYROIDISM
     Dosage: DAILY
     Route: 065
     Dates: start: 200901, end: 201905
  9. ALLOPURINOL. [Concomitant]
     Active Substance: ALLOPURINOL
     Indication: GOUT
     Route: 065
  10. DIOVAN [Suspect]
     Active Substance: VALSARTAN
     Dosage: STRENGTH: 160MG
     Route: 065
     Dates: start: 20050829, end: 20070103
  11. VALSARTAN W/HYDROCHLOROTHIAZIDE TEVA [Suspect]
     Active Substance: HYDROCHLOROTHIAZIDE\VALSARTAN
     Dosage: STRENGTH: 160?12 MG
     Route: 065
     Dates: start: 20170912, end: 20171211
  12. DIOVAN [Suspect]
     Active Substance: VALSARTAN
     Indication: HYPERTENSION
     Dosage: STRENGTH: 160MG
     Route: 065
     Dates: start: 20030120, end: 20031215

REACTIONS (3)
  - Pancreatic carcinoma [Fatal]
  - Hepatic cancer [Not Recovered/Not Resolved]
  - Renal failure [Unknown]
